FAERS Safety Report 20895305 (Version 1)
Quarter: 2022Q2

REPORT INFORMATION
  Report Type: Spontaneous
  Country: US (occurrence: None)
  Receive Date: 20220528
  Receipt Date: 20220528
  Transmission Date: 20220721
  Serious: Yes (Life-Threatening, Disabling)
  Sender: FDA-Public Use
  Company Number: None

PATIENT
  Age: 37 Year
  Sex: Female
  Weight: 105.75 kg

DRUGS (11)
  1. COPAXONE [Suspect]
     Active Substance: GLATIRAMER ACETATE
     Indication: Multiple sclerosis
     Dosage: FREQUENCY : EVERY 12 HOURS;?
     Route: 030
     Dates: start: 20200128, end: 20200228
  2. ABILIFY [Suspect]
     Active Substance: ARIPIPRAZOLE
  3. DEVICE [Concomitant]
     Active Substance: DEVICE
  4. ABILIFY [Concomitant]
     Active Substance: ARIPIPRAZOLE
  5. BUPROPION [Concomitant]
     Active Substance: BUPROPION
  6. NABUMETON [Concomitant]
  7. VITAMIN C [Concomitant]
     Active Substance: ASCORBIC ACID
  8. VITAMIN D [Concomitant]
     Active Substance: VITAMIN D NOS
  9. FISH OIL [Concomitant]
     Active Substance: FISH OIL
  10. MAGNESIUM [Concomitant]
     Active Substance: MAGNESIUM
  11. CALCIUM [Concomitant]
     Active Substance: CALCIUM

REACTIONS (6)
  - Psychotic disorder [None]
  - Schizophrenia [None]
  - Post-traumatic stress disorder [None]
  - Anxiety [None]
  - Depression [None]
  - Weight increased [None]

NARRATIVE: CASE EVENT DATE: 20200128
